FAERS Safety Report 9800006 (Version 1)
Quarter: 2014Q1

REPORT INFORMATION
  Report Type: Spontaneous
  Country: US (occurrence: US)
  Receive Date: 20140106
  Receipt Date: 20140106
  Transmission Date: 20141002
  Serious: No
  Sender: FDA-Public Use
  Company Number: US-GILEAD-2010-0030846

PATIENT
  Age: 71 Year
  Sex: Female
  Weight: 83.01 kg

DRUGS (13)
  1. LETAIRIS [Suspect]
     Indication: PULMONARY ARTERIAL HYPERTENSION
     Route: 048
     Dates: start: 20090511
  2. CYMBALTA [Concomitant]
  3. ZEMPLAR [Concomitant]
  4. VITAMIN D [Concomitant]
  5. BUMEX [Concomitant]
  6. ATENOLOL [Concomitant]
  7. RESTORIL [Concomitant]
  8. ESTRADIOL [Concomitant]
  9. ASACOL [Concomitant]
  10. ASPIRIN [Concomitant]
  11. LEVOXYL [Concomitant]
  12. PRILOSEC [Concomitant]
  13. POTASSIUM [Concomitant]

REACTIONS (1)
  - Cough [Unknown]
